FAERS Safety Report 24222859 (Version 3)
Quarter: 2024Q4

REPORT INFORMATION
  Report Type: Spontaneous
  Country: GB (occurrence: GB)
  Receive Date: 20240819
  Receipt Date: 20241011
  Transmission Date: 20250114
  Serious: Yes (Death, Other)
  Sender: PFIZER
  Company Number: GB-LUNDBECK-DKLU4002802

PATIENT
  Age: 35 Year
  Sex: Male

DRUGS (4)
  1. KETAMINE HYDROCHLORIDE [Suspect]
     Active Substance: KETAMINE HYDROCHLORIDE
     Dosage: UNK
  2. ESCITALOPRAM OXALATE [Suspect]
     Active Substance: ESCITALOPRAM OXALATE
     Indication: Depression
     Dosage: SEVERAL MONTHS
     Route: 048
     Dates: start: 20240412
  3. ABILIFY MAINTENA [Suspect]
     Active Substance: ARIPIPRAZOLE
     Dosage: 400 MG, MONTHLY (FOR MANY YEARS)
  4. OXYBATE [Suspect]
     Active Substance: OXYBATE
     Dosage: UNK

REACTIONS (2)
  - Completed suicide [Fatal]
  - Depressed mood [Unknown]
